FAERS Safety Report 9315041 (Version 1)
Quarter: 2013Q2

REPORT INFORMATION
  Report Type: Report from Study
  Country: CA (occurrence: CA)
  Receive Date: 20130529
  Receipt Date: 20130529
  Transmission Date: 20140414
  Serious: Yes (Other)
  Sender: FDA-Public Use
  Company Number: CA-JNJFOC-20130509245

PATIENT
  Sex: Female
  Weight: 42.6 kg

DRUGS (3)
  1. STELARA [Suspect]
     Indication: CROHN^S DISEASE
     Route: 065
     Dates: start: 20130304
  2. STELARA [Suspect]
     Indication: CROHN^S DISEASE
     Route: 065
     Dates: start: 20130313
  3. STELARA [Suspect]
     Indication: CROHN^S DISEASE
     Route: 065
     Dates: start: 20130225

REACTIONS (5)
  - Fistula [Not Recovered/Not Resolved]
  - Off label use [Unknown]
  - Abdominal pain [Recovering/Resolving]
  - Diarrhoea [Recovering/Resolving]
  - Inappropriate schedule of drug administration [Unknown]
